FAERS Safety Report 7494321-6 (Version None)
Quarter: 2011Q2

REPORT INFORMATION
  Report Type: 
  Country: None (occurrence: None)
  Receive Date: 20110520
  Receipt Date: 20110516
  Transmission Date: 20111010
  Serious: Yes (Other)
  Sender: FDA-Public Use
  Company Number: US-SHIRE-SPV1-2011-00800

PATIENT

DRUGS (3)
  1. INTUNIV [Suspect]
     Dosage: 2 MG, UNKNOWN
     Route: 048
  2. INTUNIV [Suspect]
     Indication: PRODUCT USED FOR UNKNOWN INDICATION
     Dosage: 3 MG, UNKNOWN
     Route: 048
  3. VYVANSE [Suspect]
     Indication: PRODUCT USED FOR UNKNOWN INDICATION
     Dosage: 70 MG, UNKNOWN
     Route: 048

REACTIONS (4)
  - FALL [None]
  - SYNCOPE [None]
  - CONCUSSION [None]
  - HYPOGLYCAEMIA [None]
